FAERS Safety Report 6546499-6 (Version None)
Quarter: 2010Q1

REPORT INFORMATION
  Report Type: 
  Country: None (occurrence: None)
  Receive Date: 20100115
  Receipt Date: 20091231
  Transmission Date: 20100710
  Serious: No
  Sender: FDA-Public Use
  Company Number: 2009-00919

PATIENT
  Sex: Female

DRUGS (1)
  1. COLD REMEDY GEL SWABS [Suspect]
     Dosage: QID FOR A FEW DAYS
     Dates: start: 20090401

REACTIONS (1)
  - ANOSMIA [None]
